FAERS Safety Report 11702141 (Version 2)
Quarter: 2015Q4

REPORT INFORMATION
  Report Type: Spontaneous
  Country: US (occurrence: US)
  Receive Date: 20151105
  Receipt Date: 20151210
  Transmission Date: 20160304
  Serious: No
  Sender: FDA-Public Use
  Company Number: US-ELI_LILLY_AND_COMPANY-US201510006192

PATIENT
  Sex: Female

DRUGS (1)
  1. HUMATROPE [Suspect]
     Active Substance: SOMATROPIN
     Indication: HYPOPITUITARISM
     Dosage: UNK, UNKNOWN
     Route: 065
     Dates: start: 2004

REACTIONS (2)
  - Drug dose omission [Unknown]
  - Injection site scar [Unknown]

NARRATIVE: CASE EVENT DATE: 20151122
